FAERS Safety Report 6366423-9 (Version None)
Quarter: 2009Q3

REPORT INFORMATION
  Report Type: 
  Country: None (occurrence: None)
  Receive Date: 20090915
  Receipt Date: 20090831
  Transmission Date: 20100115
  Serious: Yes (Hospitalization)
  Sender: FDA-Public Use
  Company Number: 8051412

PATIENT
  Age: 48 Year
  Sex: Female

DRUGS (1)
  1. KEPPRA [Suspect]
     Indication: PETIT MAL EPILEPSY
     Dosage: 500 MG/D PO
     Route: 048
     Dates: start: 20090816, end: 20090821

REACTIONS (2)
  - CONDITION AGGRAVATED [None]
  - RHABDOMYOLYSIS [None]
